FAERS Safety Report 9572037 (Version 1)
Quarter: 2013Q4

REPORT INFORMATION
  Report Type: Spontaneous
  Country: US (occurrence: US)
  Receive Date: 20131001
  Receipt Date: 20131001
  Transmission Date: 20140711
  Serious: No
  Sender: FDA-Public Use
  Company Number: US-009507513-1310USA000413

PATIENT
  Age: 52 Year
  Sex: Female

DRUGS (4)
  1. CLARITIN LIQUIGELS [Suspect]
     Indication: SEASONAL ALLERGY
     Dosage: UNK, QAM
     Route: 048
  2. CLARITIN LIQUIGELS [Suspect]
     Indication: THROAT IRRITATION
  3. CLARITIN LIQUIGELS [Suspect]
     Indication: EYE PRURITUS
  4. CLARITIN LIQUIGELS [Suspect]
     Indication: RHINORRHOEA

REACTIONS (2)
  - Drug effect decreased [Unknown]
  - Circumstance or information capable of leading to medication error [Unknown]
